FAERS Safety Report 7330746-7 (Version None)
Quarter: 2011Q1

REPORT INFORMATION
  Report Type: 
  Country: None (occurrence: None)
  Receive Date: 20110304
  Receipt Date: 20101122
  Transmission Date: 20110831
  Serious: Yes (Hospitalization, Other)
  Sender: FDA-Public Use
  Company Number: US-BAYER-2010-006841

PATIENT
  Sex: Female
  Weight: 88 kg

DRUGS (7)
  1. OCELLA [Suspect]
     Indication: HORMONE LEVEL ABNORMAL
     Dosage: UNK
     Route: 048
     Dates: start: 20080701, end: 20080901
  2. UNCODEABLE ^UNCLASSIFIABLE^ [Concomitant]
  3. OCELLA [Suspect]
     Indication: PREMENSTRUAL SYNDROME
  4. NAPROXEN [Concomitant]
  5. YASMIN [Suspect]
     Indication: HORMONE LEVEL ABNORMAL
     Dosage: UNK
     Route: 048
     Dates: start: 20061101, end: 20080601
  6. YASMIN [Suspect]
     Indication: PREMENSTRUAL SYNDROME
  7. IBUPROFEN [Concomitant]

REACTIONS (4)
  - NAUSEA [None]
  - CHOLECYSTITIS CHRONIC [None]
  - ABDOMINAL PAIN [None]
  - CHOLELITHIASIS [None]
